FAERS Safety Report 8812760 (Version 1)
Quarter: 2012Q4

REPORT INFORMATION
  Report Type: 
  Country: GB (occurrence: GB)
  Receive Date: 20120927
  Receipt Date: 20120927
  Transmission Date: 20130627
  Serious: Yes (Other)
  Sender: FDA-Public Use
  Company Number: GB-WATSON-2012-16418

PATIENT
  Age: 63 Year
  Sex: Male

DRUGS (4)
  1. CLARITHROMYCIN (UNKNOWN) [Suspect]
     Indication: CHRONIC OBSTRUCTIVE PULMONARY DISEASE
     Dosage: 250 mg, unknown
     Route: 048
  2. SYMBICORT [Suspect]
     Indication: CHRONIC OBSTRUCTIVE PULMONARY DISEASE
     Dosage: UNK
     Route: 048
     Dates: start: 201112
  3. KEPPRA [Concomitant]
     Indication: EPILEPSY
     Dosage: UNK
     Route: 065
     Dates: start: 2002
  4. ASPIRIN [Concomitant]
     Indication: BUNDLE BRANCH BLOCK LEFT
     Route: 065

REACTIONS (6)
  - Eyelid ptosis [Unknown]
  - Somnolence [Unknown]
  - Feeling abnormal [Unknown]
  - Myalgia [Unknown]
  - Hypoaesthesia [Unknown]
  - Drug interaction [Unknown]
